FAERS Safety Report 18749714 (Version 1)
Quarter: 2021Q1

REPORT INFORMATION
  Report Type: Other
  Country: ES (occurrence: ES)
  Receive Date: 20210117
  Receipt Date: 20210117
  Transmission Date: 20210419
  Serious: Yes (Other)
  Sender: FDA-Public Use
  Company Number: ES-SERVIER-S21000170

PATIENT

DRUGS (4)
  1. TN UNSPECIFIED [METHOTREXATE] [Concomitant]
     Active Substance: METHOTREXATE
     Indication: B-CELL TYPE ACUTE LEUKAEMIA
     Dosage: UNKNOWN
     Route: 065
  2. TN UNSPECIFIED [MERCAPTOPURINE] [Concomitant]
     Active Substance: MERCAPTOPURINE
     Indication: B-CELL TYPE ACUTE LEUKAEMIA
     Dosage: UNKNOWN
     Route: 065
  3. ONCASPAR [Suspect]
     Active Substance: PEGASPARGASE
     Indication: B-CELL TYPE ACUTE LEUKAEMIA
     Dosage: 1000 U/M2, EVERY 15 DAYS
     Route: 042
     Dates: start: 201710
  4. ONCASPAR [Suspect]
     Active Substance: PEGASPARGASE
     Dosage: 500 U/M2
     Route: 042

REACTIONS (5)
  - Sepsis [Unknown]
  - Fatigue [Unknown]
  - Vomiting [Unknown]
  - Haematotoxicity [Recovering/Resolving]
  - Pneumonia [Unknown]

NARRATIVE: CASE EVENT DATE: 2020
